FAERS Safety Report 5750315-X (Version None)
Quarter: 2008Q2

REPORT INFORMATION
  Report Type: 
  Country: None (occurrence: None)
  Receive Date: 20080521
  Receipt Date: 20080521
  Transmission Date: 20081010
  Serious: Yes (Hospitalization, Other)
  Sender: FDA-Public Use
  Company Number: None

PATIENT
  Age: 63 Year
  Sex: Female
  Weight: 83.9154 kg

DRUGS (2)
  1. TRIAZOLAM [Suspect]
     Indication: INSOMNIA
     Dosage: 0.125MG 1/DAY AT NIGHT PO
     Route: 048
     Dates: start: 20080201, end: 20080412
  2. OMEPRAZOLE [Suspect]
     Indication: GASTROOESOPHAGEAL REFLUX DISEASE
     Dosage: 20MG 1/DAY IN MORNING PO
     Route: 048
     Dates: start: 20080307, end: 20080420

REACTIONS (5)
  - DYSPNOEA [None]
  - HEAD DISCOMFORT [None]
  - MOVEMENT DISORDER [None]
  - NEUROMYOPATHY [None]
  - PARALYSIS [None]
